FAERS Safety Report 9825032 (Version 1)
Quarter: 2014Q1

REPORT INFORMATION
  Report Type: Spontaneous
  Country: BR (occurrence: BR)
  Receive Date: 20140117
  Receipt Date: 20140117
  Transmission Date: 20141002
  Serious: Yes (Hospitalization, Other)
  Sender: FDA-Public Use
  Company Number: BR-ASTRAZENECA-2014SE02727

PATIENT
  Age: 55 Year
  Sex: Male
  Weight: 97 kg

DRUGS (3)
  1. CRESTOR [Suspect]
     Indication: BLOOD CHOLESTEROL INCREASED
     Route: 048
  2. LIPLESS [Concomitant]
     Indication: BLOOD TRIGLYCERIDES INCREASED
     Route: 048
  3. METFORMINA [Concomitant]
     Indication: DIABETES MELLITUS
     Route: 048
     Dates: start: 2013

REACTIONS (2)
  - Myocardial infarction [Recovered/Resolved]
  - Diabetes mellitus [Unknown]
